FAERS Safety Report 20367988 (Version 9)
Quarter: 2022Q2

REPORT INFORMATION
  Report Type: Report from Study
  Country: ES (occurrence: ES)
  Receive Date: 20220124
  Receipt Date: 20220415
  Transmission Date: 20220721
  Serious: Yes (Hospitalization, Other)
  Sender: FDA-Public Use
  Company Number: ES-ABBVIE-21K-144-4068274-00

PATIENT
  Sex: Male

DRUGS (17)
  1. CARBIDOPA\LEVODOPA [Suspect]
     Active Substance: CARBIDOPA\LEVODOPA
     Indication: Parkinson^s disease
     Route: 050
     Dates: start: 20210421, end: 202111
  2. CARBIDOPA\LEVODOPA [Suspect]
     Active Substance: CARBIDOPA\LEVODOPA
     Dosage: RAISED THE CD TO 9.5ML / H AND THE ED TO 9.9ML, ON THE PUMP FOR 24 HOURS
     Route: 050
     Dates: start: 202111, end: 202112
  3. CARBIDOPA\LEVODOPA [Suspect]
     Active Substance: CARBIDOPA\LEVODOPA
     Dosage: CONTINUOUS DOSE INCREASED
     Route: 050
     Dates: start: 202112, end: 202203
  4. CARBIDOPA\LEVODOPA [Suspect]
     Active Substance: CARBIDOPA\LEVODOPA
     Dosage: CONTINUOUS DOSE DECREASED TO 9.3ML/H
     Route: 050
     Dates: start: 202203, end: 20220331
  5. CARBIDOPA\LEVODOPA [Suspect]
     Active Substance: CARBIDOPA\LEVODOPA
     Dosage: CONTINUOUS DOSE: 6.5ML/H AND NIGHT PUMP WITH CONTINUOUS DOSE: 6.3ML/H, MORNING DOSE: 0ML
     Route: 050
     Dates: start: 20220331
  6. RIVOTRIL [Suspect]
     Active Substance: CLONAZEPAM
     Indication: Product used for unknown indication
     Route: 048
     Dates: start: 2021, end: 20220218
  7. RIVOTRIL [Suspect]
     Active Substance: CLONAZEPAM
     Dosage: DOSE INCREASED?FREQUENCY: 0-2-2
     Route: 048
     Dates: start: 20220218, end: 202203
  8. RIVOTRIL [Suspect]
     Active Substance: CLONAZEPAM
     Dosage: FREQUENCY: 1-1-2
     Route: 048
     Dates: start: 202203
  9. SINEMET [Suspect]
     Active Substance: CARBIDOPA\LEVODOPA
     Indication: Product used for unknown indication
     Route: 065
     Dates: start: 2021
  10. QUETIAPINE [Concomitant]
     Active Substance: QUETIAPINE
     Indication: Product used for unknown indication
     Route: 065
     Dates: end: 20220218
  11. QUETIAPINE [Concomitant]
     Active Substance: QUETIAPINE
     Dosage: 1 AT NIGHT
     Route: 048
     Dates: start: 20220218, end: 202203
  12. QUETIAPINE [Concomitant]
     Active Substance: QUETIAPINE
     Dosage: DOSE INCREASED TO 100-100-400
     Route: 048
     Dates: start: 202203, end: 202203
  13. QUETIAPINE [Concomitant]
     Active Substance: QUETIAPINE
     Dosage: FREQUENCY: 0-0-1
     Route: 048
     Dates: start: 202203
  14. DEPRAX [Concomitant]
     Indication: Product used for unknown indication
     Dates: end: 20220218
  15. VENLAFAXINE HYDROCHLORIDE [Concomitant]
     Active Substance: VENLAFAXINE HYDROCHLORIDE
     Indication: Product used for unknown indication
     Dosage: RETARD
  16. LYRICA [Concomitant]
     Active Substance: PREGABALIN
     Indication: Product used for unknown indication
     Route: 048
  17. LYRICA [Concomitant]
     Active Substance: PREGABALIN
     Dosage: FREQUENCY : 0-0-1
     Route: 048
     Dates: start: 202203

REACTIONS (25)
  - Aggression [Recovered/Resolved]
  - Dysphagia [Recovered/Resolved]
  - Anxiety [Unknown]
  - Freezing phenomenon [Unknown]
  - Speech disorder [Recovered/Resolved]
  - Emotional distress [Recovered/Resolved]
  - Cognitive disorder [Unknown]
  - Gait inability [Unknown]
  - Condition aggravated [Unknown]
  - Discouragement [Unknown]
  - Disease progression [Unknown]
  - Muscle rigidity [Unknown]
  - Device issue [Recovered/Resolved]
  - Weight decreased [Unknown]
  - Decreased appetite [Unknown]
  - Asthenia [Unknown]
  - Fatigue [Recovered/Resolved]
  - Dyskinesia [Recovered/Resolved]
  - Vomiting [Recovered/Resolved]
  - Abdominal pain [Recovered/Resolved]
  - Disorientation [Recovered/Resolved]
  - Agitation [Recovered/Resolved]
  - On and off phenomenon [Unknown]
  - Freezing phenomenon [Unknown]
  - Somnolence [Unknown]

NARRATIVE: CASE EVENT DATE: 20210101
